FAERS Safety Report 10737873 (Version 4)
Quarter: 2015Q2

REPORT INFORMATION
  Report Type: Spontaneous
  Country: US (occurrence: US)
  Receive Date: 20150126
  Receipt Date: 20150401
  Transmission Date: 20150821
  Serious: Yes (Hospitalization, Other)
  Sender: FDA-Public Use
  Company Number: US-CELGENEUS-USA-2014112986

PATIENT
  Age: 47 Year
  Sex: Female

DRUGS (3)
  1. REVLIMID [Suspect]
     Active Substance: LENALIDOMIDE
     Indication: PLASMA CELL MYELOMA
     Route: 048
     Dates: start: 20140919, end: 20141031
  2. REVLIMID [Suspect]
     Active Substance: LENALIDOMIDE
     Route: 048
     Dates: start: 20141114, end: 20141117
  3. REVLIMID [Suspect]
     Active Substance: LENALIDOMIDE
     Route: 048
     Dates: start: 20141121, end: 20141212

REACTIONS (7)
  - Back pain [Unknown]
  - Nausea [Unknown]
  - Dyspnoea [Unknown]
  - White blood cell count decreased [Recovered/Resolved]
  - Neutropenia [Recovered/Resolved]
  - Pneumonia [Unknown]
  - Vomiting [Unknown]

NARRATIVE: CASE EVENT DATE: 20141031
